FAERS Safety Report 23645203 (Version 1)
Quarter: 2024Q1

REPORT INFORMATION
  Report Type: Report from Study
  Country: US (occurrence: US)
  Receive Date: 20240318
  Receipt Date: 20240318
  Transmission Date: 20240409
  Serious: No
  Sender: FDA-Public Use
  Company Number: US-ESPERIONTHERAPEUTICS-2023USA00186

PATIENT
  Sex: Female

DRUGS (1)
  1. BEMPEDOIC ACID\EZETIMIBE [Suspect]
     Active Substance: BEMPEDOIC ACID\EZETIMIBE
     Indication: Hypercholesterolaemia
     Dosage: 180MG/ 10MG ONCE DAILY
     Route: 048

REACTIONS (2)
  - Bone pain [Not Recovered/Not Resolved]
  - Myalgia [Not Recovered/Not Resolved]
